FAERS Safety Report 4420915-8 (Version None)
Quarter: 2004Q3

REPORT INFORMATION
  Report Type: 
  Country: None (occurrence: None)
  Receive Date: 20040809
  Receipt Date: 20040719
  Transmission Date: 20050211
  Serious: Yes (Life-Threatening, Hospitalization)
  Sender: FDA-Public Use
  Company Number: US-MERCK-0407USA01610

PATIENT
  Age: 60 Year
  Sex: Male

DRUGS (6)
  1. ANTIVIRAL (UNSPECIFIED) [Suspect]
     Route: 065
  2. CELEXA [Suspect]
     Route: 065
  3. LOPID [Suspect]
     Indication: HYPERLIPIDAEMIA
     Route: 065
  4. CRIXIVAN [Suspect]
     Route: 048
  5. COMBIVIR [Suspect]
     Route: 065
  6. ZOCOR [Suspect]
     Indication: HYPERLIPIDAEMIA
     Route: 065

REACTIONS (6)
  - ANAPHYLACTIC REACTION [None]
  - CARDIO-RESPIRATORY ARREST [None]
  - HYPOGLYCAEMIA [None]
  - MUSCLE CRAMP [None]
  - RENAL FAILURE ACUTE [None]
  - RHABDOMYOLYSIS [None]
